FAERS Safety Report 7921932-3 (Version None)
Quarter: 2011Q4

REPORT INFORMATION
  Report Type: 
  Country: None (occurrence: None)
  Receive Date: 20111117
  Receipt Date: 20111103
  Transmission Date: 20120403
  Serious: Yes (Death)
  Sender: FDA-Public Use
  Company Number: FR-ROCHE-1008059

PATIENT
  Sex: Female

DRUGS (21)
  1. RANIBIZUMAB [Suspect]
     Route: 050
     Dates: start: 20091215
  2. RANIBIZUMAB [Suspect]
     Indication: AGE-RELATED MACULAR DEGENERATION
     Route: 050
     Dates: start: 20081031
  3. RANIBIZUMAB [Suspect]
     Route: 050
     Dates: start: 20090929
  4. RANIBIZUMAB [Suspect]
     Route: 050
     Dates: start: 20091110
  5. BRINZOLAMIDE [Suspect]
     Indication: PRODUCT USED FOR UNKNOWN INDICATION
     Dosage: IN BOTH EYES
     Dates: start: 20090417
  6. RANIBIZUMAB [Suspect]
     Route: 050
     Dates: start: 20081212
  7. RANIBIZUMAB [Suspect]
     Route: 050
     Dates: start: 20090109
  8. RANIBIZUMAB [Suspect]
     Route: 050
     Dates: start: 20110302
  9. RANIBIZUMAB [Suspect]
     Route: 050
     Dates: start: 20110504
  10. CERVOXAN [Concomitant]
     Indication: CARDIOVASCULAR INSUFFICIENCY
  11. RANIBIZUMAB [Suspect]
     Route: 050
     Dates: start: 20090507
  12. RANIBIZUMAB [Suspect]
     Route: 050
     Dates: start: 20090609
  13. RANIBIZUMAB [Suspect]
     Route: 050
     Dates: start: 20091201
  14. RANIBIZUMAB [Suspect]
     Route: 050
     Dates: start: 20110126
  15. RANIBIZUMAB [Suspect]
     Route: 050
     Dates: start: 20110629
  16. RANIBIZUMAB [Suspect]
     Route: 050
     Dates: start: 20110831
  17. RANIBIZUMAB [Suspect]
     Route: 050
     Dates: start: 20090407
  18. RANIBIZUMAB [Suspect]
     Route: 050
     Dates: start: 20110222
  19. LATANOPROST [Suspect]
     Indication: PRODUCT USED FOR UNKNOWN INDICATION
     Dosage: IN BOTH EYES
     Dates: start: 20090417
  20. RANIBIZUMAB [Suspect]
     Route: 050
     Dates: start: 20091006
  21. RANIBIZUMAB [Suspect]
     Route: 050
     Dates: start: 20091103

REACTIONS (3)
  - CHRONIC LEUKAEMIA [None]
  - VISUAL ACUITY REDUCED [None]
  - INAPPROPRIATE SCHEDULE OF DRUG ADMINISTRATION [None]
